FAERS Safety Report 19727877 (Version 2)
Quarter: 2021Q3

REPORT INFORMATION
  Report Type: Report from Study
  Country: US (occurrence: US)
  Receive Date: 20210820
  Receipt Date: 20210824
  Transmission Date: 20211014
  Serious: Yes (Hospitalization)
  Sender: FDA-Public Use
  Company Number: NVSC2021US187129

PATIENT
  Age: 6 Year
  Sex: Male
  Weight: 19.7 kg

DRUGS (2)
  1. KISQALI [Suspect]
     Active Substance: RIBOCICLIB
     Indication: GLIOMA
     Dosage: 150 MG, QD
     Route: 048
     Dates: start: 20210716
  2. AFINITOR [Suspect]
     Active Substance: EVEROLIMUS
     Indication: GLIOMA
     Dosage: 0.9 MG, QD
     Route: 048
     Dates: start: 20210716

REACTIONS (3)
  - Hydrocephalus [Unknown]
  - Vomiting [Unknown]
  - Headache [Unknown]

NARRATIVE: CASE EVENT DATE: 20210809
